FAERS Safety Report 12750118 (Version 1)
Quarter: 2016Q3

REPORT INFORMATION
  Report Type: Spontaneous
  Country: US (occurrence: US)
  Receive Date: 20160916
  Receipt Date: 20160916
  Transmission Date: 20161109
  Serious: Yes (Hospitalization)
  Sender: FDA-Public Use
  Company Number: US-G+W LABS-GW2016US000113

PATIENT

DRUGS (2)
  1. TRIAMCINOLONE ACETONIDE. [Suspect]
     Active Substance: TRIAMCINOLONE ACETONIDE
     Indication: OSTEOARTHRITIS
     Dosage: 40 MG, SINGLE
     Route: 014
  2. LIDOCAINE. [Concomitant]
     Active Substance: LIDOCAINE
     Indication: OSTEOARTHRITIS
     Dosage: 2 ML, SINGLE
     Route: 014

REACTIONS (2)
  - Immobile [None]
  - Administration site joint inflammation [Recovering/Resolving]
